FAERS Safety Report 6462723-2 (Version None)
Quarter: 2009Q4

REPORT INFORMATION
  Report Type: 
  Country: None (occurrence: None)
  Receive Date: 20091130
  Receipt Date: 20091123
  Transmission Date: 20100525
  Serious: Yes (Hospitalization)
  Sender: FDA-Public Use
  Company Number: US-GILEAD-2009-0025339

PATIENT
  Sex: Male
  Weight: 46.308 kg

DRUGS (20)
  1. LETAIRIS [Suspect]
     Indication: PULMONARY ARTERIAL HYPERTENSION
     Route: 048
     Dates: start: 20080826
  2. VIAGRA [Concomitant]
  3. FLOLAN [Concomitant]
  4. DIGOXIN [Concomitant]
  5. ALDACTAZIDE 25/25 [Concomitant]
  6. FUROSEMIDE [Concomitant]
  7. COUMADIN [Concomitant]
  8. HEPARIN [Concomitant]
  9. ZAROXOLYN [Concomitant]
  10. OXYGEN [Concomitant]
  11. ADVAIR DISKUS 100/50 [Concomitant]
  12. PREDNISONE [Concomitant]
  13. AMOXICILLIN [Concomitant]
  14. BACTRIM [Concomitant]
     Indication: ANTIFUNGAL PROPHYLAXIS
  15. MEPRON [Concomitant]
  16. ZANTAC [Concomitant]
  17. K-DUR [Concomitant]
  18. SODIUM CHLORIDE [Concomitant]
  19. MULTIVITAMIN/IRON CHILD [Concomitant]
  20. STERILE DILUTE FOR FLOLAN [Concomitant]

REACTIONS (2)
  - THROMBOCYTOPENIA [None]
  - UPPER RESPIRATORY TRACT INFECTION [None]
